FAERS Safety Report 5833777-9 (Version None)
Quarter: 2008Q3

REPORT INFORMATION
  Report Type: 
  Country: None (occurrence: None)
  Receive Date: 20080804
  Receipt Date: 20080804
  Transmission Date: 20090109
  Serious: Yes (Other)
  Sender: FDA-Public Use
  Company Number: None

PATIENT
  Sex: Male
  Weight: 63.05 kg

DRUGS (6)
  1. EMEND [Suspect]
     Indication: PROPHYLAXIS OF NAUSEA AND VOMITING
     Dosage: 1 CAPSULE ONCE DAILY PO
     Route: 048
     Dates: start: 20080722, end: 20080724
  2. FERROUS SULFATE TAB [Concomitant]
  3. ZANTAC [Concomitant]
  4. IMODIUM A-D [Concomitant]
  5. LEXAPRO [Concomitant]
  6. FOLFOX [Concomitant]

REACTIONS (2)
  - DYSPNOEA [None]
  - HICCUPS [None]
